FAERS Safety Report 7617380-6 (Version None)
Quarter: 2011Q3

REPORT INFORMATION
  Report Type: 
  Country: None (occurrence: None)
  Receive Date: 20110718
  Receipt Date: 20110715
  Transmission Date: 20111222
  Serious: Yes (Other)
  Sender: FDA-Public Use
  Company Number: US-PFIZER INC-2011161038

PATIENT
  Sex: Female

DRUGS (2)
  1. LYRICA [Suspect]
     Dosage: 100 MG, 1X/DAY
  2. LYRICA [Suspect]
     Indication: FIBROMYALGIA
     Dosage: 75 MG, 1X/DAY
     Route: 048
     Dates: start: 20110708

REACTIONS (2)
  - HALLUCINATION [None]
  - FATIGUE [None]
